FAERS Safety Report 5278448-5 (Version None)
Quarter: 2007Q1

REPORT INFORMATION
  Report Type: 
  Country: None (occurrence: None)
  Receive Date: 20070328
  Receipt Date: 20070323
  Transmission Date: 20070707
  Serious: Yes (Death, Hospitalization)
  Sender: FDA-Public Use
  Company Number: US-BAYER-200610944BWH

PATIENT
  Age: 64 Year
  Sex: Male
  Weight: 83 kg

DRUGS (5)
  1. NEXAVAR [Suspect]
     Indication: RENAL CELL CARCINOMA STAGE UNSPECIFIED
     Dosage: TOTAL DAILY DOSE: 400 MG  UNIT DOSE: 200 MG
     Route: 048
     Dates: start: 20060116, end: 20060101
  2. NEXAVAR [Suspect]
     Dosage: TOTAL DAILY DOSE: 400 MG  UNIT DOSE: 200 MG
     Route: 048
     Dates: start: 20060101, end: 20061205
  3. NEXAVAR [Suspect]
     Dosage: TOTAL DAILY DOSE: 800 MG  UNIT DOSE: 200 MG
     Route: 048
     Dates: start: 20060210, end: 20060601
  4. NADOLOL [Concomitant]
     Dosage: TOTAL DAILY DOSE: 20 MG
     Route: 048
  5. LAXATIVES NOS [Concomitant]

REACTIONS (12)
  - ABDOMINAL PAIN UPPER [None]
  - BLOOD PRESSURE INCREASED [None]
  - DECREASED APPETITE [None]
  - DISORIENTATION [None]
  - FATIGUE [None]
  - GASTROINTESTINAL HAEMORRHAGE [None]
  - HEPATIC ENCEPHALOPATHY [None]
  - MALAISE [None]
  - MELAENA [None]
  - MYOCARDIAL INFARCTION [None]
  - NAUSEA [None]
  - RENAL CELL CARCINOMA STAGE UNSPECIFIED [None]
